FAERS Safety Report 16944924 (Version 2)
Quarter: 2019Q4

REPORT INFORMATION
  Report Type: Spontaneous
  Country: IT (occurrence: IT)
  Receive Date: 20191022
  Receipt Date: 20191031
  Transmission Date: 20200122
  Serious: Yes (Other)
  Sender: FDA-Public Use
  Company Number: IT-ASTRAZENECA-2019SF45521

PATIENT
  Age: 71 Year
  Sex: Female

DRUGS (10)
  1. BISOPROLOL [Concomitant]
     Active Substance: BISOPROLOL
     Indication: HYPERTENSION
  2. SOLDESAM [Concomitant]
     Active Substance: DEXAMETHASONE
     Indication: BONE PAIN
  3. LANSOPRAZOLE. [Concomitant]
     Active Substance: LANSOPRAZOLE
  4. IBRANCE [Suspect]
     Active Substance: PALBOCICLIB
     Indication: NEOPLASM PROGRESSION
     Dosage: 125.0MG EVERY CYCLE
     Route: 048
     Dates: start: 20180607, end: 20191002
  5. TARGIN [Concomitant]
     Active Substance: NALOXONE HYDROCHLORIDE\OXYCODONE HYDROCHLORIDE
     Indication: BONE PAIN
  6. IBRANCE [Suspect]
     Active Substance: PALBOCICLIB
     Indication: BREAST CANCER METASTATIC
     Dosage: 125.0MG EVERY CYCLE
     Route: 048
     Dates: start: 20180607, end: 20191002
  7. CLEXANE [Suspect]
     Active Substance: ENOXAPARIN SODIUM
     Indication: THROMBOSIS
     Route: 065
  8. TARGIN [Concomitant]
     Active Substance: NALOXONE HYDROCHLORIDE\OXYCODONE HYDROCHLORIDE
     Indication: BONE PAIN
  9. LYRICA [Concomitant]
     Active Substance: PREGABALIN
     Indication: BONE PAIN
  10. FASLODEX [Suspect]
     Active Substance: FULVESTRANT
     Indication: BREAST CANCER METASTATIC
     Dosage: UNK
     Route: 030

REACTIONS (3)
  - Blister [Recovered/Resolved]
  - Pemphigoid [Recovered/Resolved]
  - Pustule [Recovered/Resolved]

NARRATIVE: CASE EVENT DATE: 20190902
